FAERS Safety Report 5102847-5 (Version None)
Quarter: 2006Q3

REPORT INFORMATION
  Report Type: 
  Country: None (occurrence: None)
  Receive Date: 20060912
  Receipt Date: 20060818
  Transmission Date: 20061208
  Serious: Yes (Other)
  Sender: FDA-Public Use
  Company Number: JP-SANOFI-SYNTHELABO-A01200606611

PATIENT
  Sex: Male
  Weight: 50 kg

DRUGS (8)
  1. GLYCEOL [Concomitant]
     Indication: CEREBRAL INFARCTION
     Route: 042
     Dates: start: 20060729, end: 20060807
  2. HEPARIN [Concomitant]
     Indication: CEREBRAL INFARCTION
     Route: 042
     Dates: start: 20060802, end: 20060810
  3. MAGMITT [Concomitant]
     Indication: CONSTIPATION
     Route: 048
     Dates: start: 20060801
  4. 8-HOUR BAYER [Concomitant]
     Indication: CEREBRAL INFARCTION
     Route: 048
     Dates: start: 20060801
  5. MICARDIS [Concomitant]
     Indication: HYPERTENSION
     Route: 048
     Dates: start: 20060805
  6. TAKEPRON [Concomitant]
     Indication: REFLUX OESOPHAGITIS
     Route: 048
     Dates: start: 20060805
  7. PLAVIX [Suspect]
     Indication: CEREBRAL INFARCTION
     Route: 048
     Dates: start: 20060805, end: 20060812
  8. LIVALO [Concomitant]
     Indication: HYPERLIPIDAEMIA
     Route: 048
     Dates: start: 20060801

REACTIONS (1)
  - RHABDOMYOLYSIS [None]
